FAERS Safety Report 6433800-7 (Version None)
Quarter: 2009Q4

REPORT INFORMATION
  Report Type: 
  Country: None (occurrence: None)
  Receive Date: 20091110
  Receipt Date: 20091030
  Transmission Date: 20100525
  Serious: Yes (Death)
  Sender: FDA-Public Use
  Company Number: US-JNJFOC-20091100292

PATIENT
  Sex: Male

DRUGS (1)
  1. REMICADE [Suspect]
     Indication: DRUG USE FOR UNKNOWN INDICATION
     Route: 042
     Dates: start: 20020301

REACTIONS (4)
  - ARTERIOSCLEROSIS [None]
  - BACK PAIN [None]
  - CORONARY ARTERY THROMBOSIS [None]
  - HYPERTENSIVE HEART DISEASE [None]
